FAERS Safety Report 7065830-9 (Version None)
Quarter: 2010Q4

REPORT INFORMATION
  Report Type: 
  Country: None (occurrence: None)
  Receive Date: 20101027
  Receipt Date: 20101025
  Transmission Date: 20110411
  Serious: Yes (Death, Other)
  Sender: FDA-Public Use
  Company Number: JP-ELI_LILLY_AND_COMPANY-JP201009000777

PATIENT
  Sex: Male
  Weight: 63.3 kg

DRUGS (16)
  1. ALIMTA [Suspect]
     Indication: PLEURAL MESOTHELIOMA MALIGNANT
     Dosage: 500 MG/M2, OTHER
     Route: 042
     Dates: start: 20100721, end: 20100812
  2. RANDA [Concomitant]
     Indication: PLEURAL MESOTHELIOMA MALIGNANT
     Dosage: 125 MG, EVERY 21 DAYS
     Route: 042
     Dates: start: 20100721, end: 20100721
  3. RANDA [Concomitant]
     Dosage: 98 MG, EVERY 21 DAYS
     Route: 042
     Dates: start: 20100812, end: 20100812
  4. PANVITAN [Concomitant]
     Dosage: 1 G, DAILY (1/D)
     Route: 048
     Dates: start: 20100714
  5. CYANOCOBALAMIN [Concomitant]
     Dosage: 1 MG, DAILY (1/D)
     Route: 030
     Dates: start: 20100714
  6. ZYPREXA [Concomitant]
     Dosage: 2.5 MG, DAILY (1/D)
     Route: 048
     Dates: start: 20100712, end: 20100815
  7. MONILAC [Concomitant]
     Dosage: 30 ML, 3/D
     Route: 048
     Dates: start: 20100712, end: 20100815
  8. PURSENNID [Concomitant]
     Indication: PROPHYLAXIS
     Dosage: 24 MG, DAILY (1/D)
     Route: 048
     Dates: start: 20100712, end: 20100815
  9. MAGLAX [Concomitant]
     Indication: PROPHYLAXIS
     Dosage: 1500 MG, DAILY (1/D)
     Route: 048
     Dates: start: 20100712, end: 20100815
  10. GABAPEN [Concomitant]
     Dosage: 300 MG, DAILY (1/D)
     Route: 048
     Dates: start: 20100712, end: 20100815
  11. VOLTAREN [Concomitant]
     Dosage: 75 MG, DAILY (1/D)
     Route: 048
     Dates: start: 20100712, end: 20100815
  12. CYTOTEC [Concomitant]
     Indication: PROPHYLAXIS
     Dosage: 400 MG, DAILY (1/D)
     Route: 048
     Dates: start: 20100712, end: 20100815
  13. GASTER D [Concomitant]
     Indication: PROPHYLAXIS
     Dosage: 40 MG, DAILY (1/D)
     Route: 048
     Dates: start: 20100712, end: 20100815
  14. OXYCONTIN [Concomitant]
     Dosage: 80 MG, DAILY (1/D)
     Route: 048
     Dates: start: 20100712, end: 20100816
  15. LENDORMIN [Concomitant]
     Dosage: 0.25 MG, DAILY (1/D)
     Route: 048
     Dates: start: 20100731, end: 20100815
  16. OXYCODONE HCL [Concomitant]
     Dosage: 5 MG, DAILY (1/D)
     Route: 048
     Dates: start: 20100802, end: 20100815

REACTIONS (3)
  - DYSPNOEA [None]
  - INTERSTITIAL LUNG DISEASE [None]
  - OEDEMA PERIPHERAL [None]
